FAERS Safety Report 11703355 (Version 5)
Quarter: 2016Q3

REPORT INFORMATION
  Report Type: Spontaneous
  Country: US (occurrence: US)
  Receive Date: 20151105
  Receipt Date: 20160921
  Transmission Date: 20161109
  Serious: Yes (Hospitalization, Other)
  Sender: FDA-Public Use
  Company Number: US-DSJP-DSU-2015-120129

PATIENT

DRUGS (5)
  1. AMLODIPINE                         /00972402/ [Concomitant]
     Active Substance: AMLODIPINE BESYLATE
     Dosage: 10 MG, QD
     Route: 048
     Dates: start: 2009
  2. AMLODIPINE                         /00972402/ [Concomitant]
     Active Substance: AMLODIPINE BESYLATE
     Indication: PRODUCT USED FOR UNKNOWN INDICATION
     Dosage: 5 MG, QD
     Route: 048
     Dates: start: 201010, end: 201206
  3. BENICAR [Suspect]
     Active Substance: OLMESARTAN MEDOXOMIL
     Indication: HYPERTENSION
     Dosage: 40 MG, QD
     Route: 048
     Dates: start: 20060502, end: 20091127
  4. BENICAR HCT [Suspect]
     Active Substance: HYDROCHLOROTHIAZIDE\OLMESARTAN MEDOXOMIL
     Indication: HYPERTENSION
     Dosage: 40/25 MG, QD
     Route: 048
     Dates: start: 20081103, end: 20140411
  5. BENICAR HCT [Suspect]
     Active Substance: HYDROCHLOROTHIAZIDE\OLMESARTAN MEDOXOMIL
     Dosage: 20/12.5 MG, QD
     Route: 048

REACTIONS (10)
  - Hernia [Unknown]
  - Hiatus hernia [Unknown]
  - Melaena [Unknown]
  - Malabsorption [Not Recovered/Not Resolved]
  - Dysphagia [Recovered/Resolved]
  - Oesophagitis [Unknown]
  - Oesophageal stenosis [Unknown]
  - Anxiety [Unknown]
  - Constipation [Not Recovered/Not Resolved]
  - Haematemesis [Unknown]

NARRATIVE: CASE EVENT DATE: 200706
